FAERS Safety Report 9025073 (Version 2)
Quarter: 2013Q3

REPORT INFORMATION
  Report Type: Spontaneous
  Country: BR (occurrence: BR)
  Receive Date: 20130121
  Receipt Date: 20130711
  Transmission Date: 20140515
  Serious: Yes (Other)
  Sender: FDA-Public Use
  Company Number: BR-BRISTOL-MYERS SQUIBB COMPANY-17296385

PATIENT
  Age: 82 Year
  Sex: Female
  Weight: 70 kg

DRUGS (5)
  1. ONGLYZA TABS 5 MG [Suspect]
     Indication: TYPE 2 DIABETES MELLITUS
     Route: 048
     Dates: start: 1999
  2. GLIFAGE [Concomitant]
  3. PURAN T4 [Concomitant]
  4. DIOVAN [Concomitant]
  5. AMLODIPINE [Concomitant]

REACTIONS (1)
  - Pneumonia [Recovering/Resolving]
